FAERS Safety Report 12707964 (Version 1)
Quarter: 2016Q3

REPORT INFORMATION
  Report Type: Spontaneous
  Country: US (occurrence: US)
  Receive Date: 20160901
  Receipt Date: 20160901
  Transmission Date: 20161109
  Serious: Yes (Other)
  Sender: FDA-Public Use
  Company Number: US-PFIZER INC-2016405459

PATIENT
  Age: 34 Year
  Sex: Male

DRUGS (1)
  1. EPINEPHRINE. [Suspect]
     Active Substance: EPINEPHRINE
     Indication: ANAPHYLACTIC REACTION
     Dosage: 1 MG, UNK, ((1:10,000) IV PUSH)
     Route: 040

REACTIONS (4)
  - Hypotension [Recovered/Resolved]
  - Accidental overdose [Unknown]
  - Condition aggravated [Recovered/Resolved]
  - Dizziness [Unknown]
